FAERS Safety Report 25508829 (Version 1)
Quarter: 2025Q3

REPORT INFORMATION
  Report Type: Spontaneous
  Country: US (occurrence: US)
  Receive Date: 20250703
  Receipt Date: 20250703
  Transmission Date: 20251020
  Serious: Yes (Other)
  Sender: BRISTOL-MYERS SQUIBB COMPANY
  Company Number: US-BRISTOL-MYERS SQUIBB COMPANY-2025-092926

PATIENT
  Age: 95 Year
  Sex: Female

DRUGS (1)
  1. LENALIDOMIDE [Suspect]
     Active Substance: LENALIDOMIDE
     Indication: Breast cancer
     Dosage: TAKE 1 CAPSULE BY MOUTH EVERY OTHER DAY FOR 21 DAYS ON AND 7 DAYS OFF
     Route: 048

REACTIONS (3)
  - Product dose omission issue [Unknown]
  - Haemorrhage [Unknown]
  - Drug ineffective [Unknown]
